FAERS Safety Report 9159692 (Version 1)
Quarter: 2013Q1

REPORT INFORMATION
  Report Type: Spontaneous
  Country: US (occurrence: US)
  Receive Date: 20130313
  Receipt Date: 20130313
  Transmission Date: 20140127
  Serious: No
  Sender: FDA-Public Use
  Company Number: US-BAYER-2013-030083

PATIENT
  Sex: 0

DRUGS (2)
  1. ALEVE CAPLET/TABLET,MIDOL EXTENDED RELIEF CAPLET [Suspect]
     Dosage: UNK UNK, BID
     Route: 048
  2. TRAMADOL [Concomitant]

REACTIONS (3)
  - Crying [None]
  - Decreased appetite [None]
  - Unevaluable event [None]
